FAERS Safety Report 10156612 (Version 2)
Quarter: 2014Q2

REPORT INFORMATION
  Report Type: Spontaneous
  Country: US (occurrence: None)
  Receive Date: 20140505
  Receipt Date: 20140516
  Transmission Date: 20141212
  Serious: Yes (Life-Threatening)
  Sender: FDA-Public Use
  Company Number: 20140245

PATIENT
  Age: 56 Year
  Sex: Female

DRUGS (7)
  1. SODIUM CHLORIDE INJECTION [Suspect]
     Indication: HYPOTENSION
     Dosage: 2.5 L THEN 8 L  INTRAVENOUS
  2. HYDROCORTISONE [Suspect]
     Indication: ADRENAL INSUFFICIENCY
  3. DOPAMINE [Concomitant]
  4. PIPERACILLIN/TAZOBACTAM [Concomitant]
  5. NORADRENALINE (NOREPHINEPHRINE) [Concomitant]
  6. VANCOMYCIN [Concomitant]
  7. FLUCONAZOLE [Concomitant]

REACTIONS (14)
  - Hypokalaemia [None]
  - Respiratory acidosis [None]
  - Apparent life threatening event [None]
  - Adrenal insufficiency [None]
  - Pneumonia [None]
  - Urinary tract infection [None]
  - Body temperature decreased [None]
  - Heart rate decreased [None]
  - Mental status changes [None]
  - Condition aggravated [None]
  - Metabolic alkalosis [None]
  - Blood bicarbonate decreased [None]
  - Metabolic acidosis [None]
  - Blood sodium decreased [None]
